FAERS Safety Report 10109733 (Version 1)
Quarter: 2014Q2

REPORT INFORMATION
  Report Type: Spontaneous
  Country: NZ (occurrence: None)
  Receive Date: 20140423
  Receipt Date: 20140423
  Transmission Date: 20141212
  Serious: No
  Sender: FDA-Public Use
  Company Number: 2014AP002640

PATIENT
  Age: 69 Year
  Sex: Female

DRUGS (3)
  1. ATORVASTATIN (ATORVASTATIN) TABLET [Suspect]
     Indication: HYPERCHOLESTEROLAEMIA
  2. METOPROLOL (METOPROLOL) [Concomitant]
  3. ASPIRIN (ACETYLSALICYLIC ACID) [Concomitant]

REACTIONS (2)
  - Myasthenia gravis [None]
  - Diplopia [None]
